FAERS Safety Report 23994425 (Version 11)
Quarter: 2025Q4

REPORT INFORMATION
  Report Type: Spontaneous
  Country: US (occurrence: US)
  Receive Date: 20240620
  Receipt Date: 20251127
  Transmission Date: 20260118
  Serious: Yes (Hospitalization, Other)
  Sender: CSL BEHRING
  Company Number: US-BEH-2024173396

PATIENT
  Age: 8 Year
  Sex: Male

DRUGS (36)
  1. HIZENTRA [Suspect]
     Active Substance: HUMAN IMMUNOGLOBULIN G
     Indication: Hypogammaglobulinaemia
     Dosage: 3 G (15 ML) , QW
     Route: 058
     Dates: start: 20240605
  2. HIZENTRA [Suspect]
     Active Substance: HUMAN IMMUNOGLOBULIN G
     Dosage: 3 G, QW, TRANSFER 15 ML INTO A 50 ML SYRINGE. INFUSE 15 ML (3 GM)
     Route: 058
     Dates: start: 20240605
  3. HIZENTRA [Suspect]
     Active Substance: HUMAN IMMUNOGLOBULIN G
     Dosage: 3 G (15 ML) , QW
     Route: 058
     Dates: start: 20240605
  4. ALBUTEROL [Concomitant]
     Active Substance: ALBUTEROL
  5. FLONASE [Concomitant]
     Active Substance: FLUTICASONE PROPIONATE
  6. MELATONIN [Concomitant]
     Active Substance: MELATONIN
  7. STRATTERA [Concomitant]
     Active Substance: ATOMOXETINE HYDROCHLORIDE
  8. ADVAIR HFA [Concomitant]
     Active Substance: FLUTICASONE PROPIONATE\SALMETEROL XINAFOATE
  9. ALBUTEROL [Concomitant]
     Active Substance: ALBUTEROL
  10. ATOMOXETINE [Concomitant]
     Active Substance: ATOMOXETINE
  11. AZITHROMYCIN [Concomitant]
     Active Substance: AZITHROMYCIN
  12. DEXAMETHASONE [Concomitant]
     Active Substance: DEXAMETHASONE
  13. HYOSCYAMINE [Concomitant]
     Active Substance: HYOSCYAMINE
  14. LIDOCAINE\PRILOCAINE [Concomitant]
     Active Substance: LIDOCAINE\PRILOCAINE
  15. MIRALAX [Concomitant]
     Active Substance: POLYETHYLENE GLYCOL 3350
  16. OMEPRAZOLE [Concomitant]
     Active Substance: OMEPRAZOLE
  17. OSELTAMIVIR [Concomitant]
     Active Substance: OSELTAMIVIR
  18. PREDNISONE [Concomitant]
     Active Substance: PREDNISONE
  19. PREDNISONE [Concomitant]
     Active Substance: PREDNISONE
  20. OXYCODONE [Concomitant]
     Active Substance: OXYCODONE
  21. OFLOXACIN [Concomitant]
     Active Substance: OFLOXACIN
  22. TYLENOL 8HR [Concomitant]
     Active Substance: ACETAMINOPHEN
  23. AMOXICILLIN [Concomitant]
     Active Substance: AMOXICILLIN
  24. SULFAMETHOXAZOLE\TRIMETHOPRIM [Concomitant]
     Active Substance: SULFAMETHOXAZOLE\TRIMETHOPRIM
  25. DEXAMETHASONE [Concomitant]
     Active Substance: DEXAMETHASONE
  26. DEXAMETHASONE [Concomitant]
     Active Substance: DEXAMETHASONE
  27. ADVAIR HFA [Concomitant]
     Active Substance: FLUTICASONE PROPIONATE\SALMETEROL XINAFOATE
  28. ALBUTEROL SULFATE [Concomitant]
     Active Substance: ALBUTEROL SULFATE
  29. IBUPROFEN [Concomitant]
     Active Substance: IBUPROFEN
  30. EPINEPHRINE [Concomitant]
     Active Substance: EPINEPHRINE
     Dosage: 0.15 MG, PEN (2-2)
  31. FLONASE ALLERGY RELIEF [Concomitant]
     Active Substance: FLUTICASONE PROPIONATE
     Dosage: 50 MCG
  32. GUANFACINE [Concomitant]
     Active Substance: GUANFACINE
  33. SYMBICORT [Concomitant]
     Active Substance: BUDESONIDE\FORMOTEROL FUMARATE DIHYDRATE
     Dosage: AER 160-4.5
  34. AUGMENTIN [Concomitant]
     Active Substance: AMOXICILLIN\CLAVULANATE POTASSIUM
  35. BUDESONIDE\FORMOTEROL [Concomitant]
     Active Substance: BUDESONIDE\FORMOTEROL
  36. TAMIFLU [Concomitant]
     Active Substance: OSELTAMIVIR PHOSPHATE

REACTIONS (17)
  - Influenza [Not Recovered/Not Resolved]
  - Pneumonia [Not Recovered/Not Resolved]
  - Drug ineffective [Unknown]
  - Nausea [Unknown]
  - Abdominal discomfort [Unknown]
  - Dizziness [Unknown]
  - Surgery [Unknown]
  - Therapy interrupted [Unknown]
  - Injection site erythema [Recovered/Resolved]
  - Infusion site swelling [Not Recovered/Not Resolved]
  - Infusion site pain [Not Recovered/Not Resolved]
  - Illness [Not Recovered/Not Resolved]
  - Gastroenteritis viral [Unknown]
  - Nausea [Unknown]
  - Vomiting [Unknown]
  - Diarrhoea [Unknown]
  - Pyrexia [Unknown]

NARRATIVE: CASE EVENT DATE: 20250124
